FAERS Safety Report 6910520-3 (Version None)
Quarter: 2010Q3

REPORT INFORMATION
  Report Type: 
  Country: None (occurrence: None)
  Receive Date: 20100806
  Receipt Date: 20100727
  Transmission Date: 20110219
  Serious: Yes (Other)
  Sender: FDA-Public Use
  Company Number: PHHY2010JP48260

PATIENT
  Age: 11 Year
  Sex: Male

DRUGS (20)
  1. TEGRETOL [Suspect]
     Indication: EPILEPSY
  2. PHENOBARBITAL [Suspect]
  3. POTASSIUM BROMIDE [Suspect]
  4. GABAPENTIN [Suspect]
  5. VALPROIC ACID [Suspect]
     Indication: EPILEPSY
  6. CLONAZEPAM [Suspect]
  7. CLOBAZAM [Suspect]
     Dosage: UNK
  8. PHENYTOIN [Suspect]
     Dosage: UNK
  9. ETHYL LOFLAZEPATE [Suspect]
  10. SULTIAME [Suspect]
  11. ZONISAMIDE [Suspect]
     Dosage: DOSE REDUCED ON MONTHLY BASIS
  12. LANDSEN [Concomitant]
  13. EXCEGRAN [Concomitant]
  14. MYSTAN [Concomitant]
  15. PHENYTOIN SODIUM [Concomitant]
  16. MEILAX [Concomitant]
  17. OSPOLOT [Concomitant]
  18. LAMICTAL [Concomitant]
  19. LAMOTRIGINE [Suspect]
     Dosage: UNK
  20. LAMOTRIGINE [Suspect]
     Dosage: 1.25 MG/KG/ DAY AFTER 4 WEEKS OF STARTS DATE

REACTIONS (4)
  - CONVULSION [None]
  - DROP ATTACKS [None]
  - DRUG ERUPTION [None]
  - MYOCLONUS [None]
